FAERS Safety Report 18274988 (Version 3)
Quarter: 2021Q3

REPORT INFORMATION
  Report Type: Spontaneous
  Country: US (occurrence: US)
  Receive Date: 20200916
  Receipt Date: 20210817
  Transmission Date: 20211014
  Serious: No
  Sender: FDA-Public Use
  Company Number: US-PFIZER INC-2020353216

PATIENT
  Age: 58 Year
  Sex: Female
  Weight: 56.69 kg

DRUGS (1)
  1. PREMPRO [Suspect]
     Active Substance: ESTROGENS, CONJUGATED\MEDROXYPROGESTERONE ACETATE
     Dosage: UNK

REACTIONS (7)
  - Hot flush [Unknown]
  - Weight fluctuation [Unknown]
  - Drug ineffective [Unknown]
  - Infection [Unknown]
  - Hyperhidrosis [Unknown]
  - Menstrual disorder [Unknown]
  - Feeling abnormal [Unknown]
